FAERS Safety Report 8229703-8 (Version None)
Quarter: 2012Q1

REPORT INFORMATION
  Report Type: 
  Country: None (occurrence: None)
  Receive Date: 20120322
  Receipt Date: 20120314
  Transmission Date: 20120608
  Serious: Yes (Hospitalization)
  Sender: FDA-Public Use
  Company Number: PHHO2012SE003244

PATIENT
  Sex: Female
  Weight: 97.7 kg

DRUGS (15)
  1. HYDROCHLOROTHIAZIDE [Concomitant]
     Dosage: 25 MG, UNK
     Dates: start: 20111219, end: 20120109
  2. LEVOTHYROXINE SODIUM [Concomitant]
  3. ESIDRIX [Suspect]
     Indication: CARDIOVASCULAR DISORDER
     Dosage: ACTIVE RUN IN PHASE
  4. ENALAPRIL MALEATE [Suspect]
     Dosage: 20 MG, UNK
     Dates: start: 20090225
  5. ATARAX [Concomitant]
  6. BLINDED NO TREATMENT RECEIVED [Suspect]
     Indication: CARDIOVASCULAR DISORDER
     Dosage: ACTIVE RUN IN PHASE
  7. FENURIL [Concomitant]
  8. BIGUANIDES [Concomitant]
     Dosage: UNK
  9. GLIPIZIDE [Concomitant]
  10. LITHIUM CITRATE [Concomitant]
  11. BLINDED ALISKIREN [Suspect]
     Indication: CARDIOVASCULAR DISORDER
     Dosage: ACTIVE RUN IN PHASE
  12. AMLODIPINE [Suspect]
     Indication: CARDIOVASCULAR DISORDER
     Dosage: ACTIVE RUN IN PHASE
  13. PLACEBO [Suspect]
     Indication: CARDIOVASCULAR DISORDER
     Dosage: ACTIVE RUN IN PHASE
  14. ALISKIREN [Suspect]
     Dosage: 300 MG, UNK
     Dates: start: 20111219, end: 20120109
  15. METOPROLOL SUCCINATE [Concomitant]

REACTIONS (5)
  - DRUG INTERACTION [None]
  - ANXIETY [None]
  - TOXICITY TO VARIOUS AGENTS [None]
  - DIZZINESS [None]
  - TREMOR [None]
